FAERS Safety Report 10189306 (Version 2)
Quarter: 2014Q4

REPORT INFORMATION
  Report Type: Report from Study
  Country: US (occurrence: US)
  Receive Date: 20140522
  Receipt Date: 20141210
  Transmission Date: 20150528
  Serious: Yes (Other)
  Sender: FDA-Public Use
  Company Number: US-BAXTER-2014BAX025390

PATIENT
  Age: 3 Year
  Sex: Female
  Weight: 25.88 kg

DRUGS (2)
  1. GAMMAGARD LIQUID [Suspect]
     Active Substance: HUMAN IMMUNOGLOBULIN G
     Indication: DERMATOMYOSITIS
     Route: 042
     Dates: start: 201204
  2. GAMMAGARD LIQUID [Suspect]
     Active Substance: HUMAN IMMUNOGLOBULIN G
     Indication: OFF LABEL USE

REACTIONS (3)
  - Petechiae [Recovered/Resolved]
  - Respiratory tract infection [Recovered/Resolved]
  - Meningitis aseptic [Not Recovered/Not Resolved]

NARRATIVE: CASE EVENT DATE: 201204
